FAERS Safety Report 6140401-7 (Version None)
Quarter: 2009Q1

REPORT INFORMATION
  Report Type: 
  Country: None (occurrence: None)
  Receive Date: 20090331
  Receipt Date: 20090316
  Transmission Date: 20090719
  Serious: Yes (Hospitalization)
  Sender: FDA-Public Use
  Company Number: 430015M09USA

PATIENT
  Age: 70 Year
  Sex: Male

DRUGS (11)
  1. NOVANTRONE [Suspect]
     Indication: PROSTATE CANCER METASTATIC
     Dosage: INTRAVENOUS (NOT OTHERWISE SPECIFIED)
     Route: 042
  2. CETUXIMAB (CETUXIMAB) [Suspect]
     Indication: PROSTATE CANCER METASTATIC
     Dosage: 61 MG, 1 IN 1 WEEKS, INTRAVENOUS (NOT OTHERWISE SPECIFIED)
     Route: 042
     Dates: start: 20090302, end: 20090309
  3. DURAGESIC-100 [Concomitant]
  4. PERCOCET [Concomitant]
  5. ZOMETA [Concomitant]
  6. ARANESP [Concomitant]
  7. MORPHINE SULFATE [Concomitant]
  8. PREDNISONE TAB [Concomitant]
  9. MIRALAX [Concomitant]
  10. MEGACE [Concomitant]
  11. REGLAN [Concomitant]

REACTIONS (2)
  - ABDOMINAL PAIN [None]
  - MENTAL STATUS CHANGES [None]
